FAERS Safety Report 15471992 (Version 5)
Quarter: 2019Q4

REPORT INFORMATION
  Report Type: Report from Study
  Country: BE (occurrence: BE)
  Receive Date: 20181008
  Receipt Date: 20191030
  Transmission Date: 20200122
  Serious: No
  Sender: FDA-Public Use
  Company Number: BE-ROCHE-2193453

PATIENT
  Age: 40 Year

DRUGS (1)
  1. OCRELIZUMAB. [Suspect]
     Active Substance: OCRELIZUMAB
     Indication: PRIMARY PROGRESSIVE MULTIPLE SCLEROSIS
     Route: 065
     Dates: end: 201905

REACTIONS (8)
  - Tachycardia [Unknown]
  - Constipation [Unknown]
  - Urinary tract infection [Unknown]
  - Disease progression [Not Recovered/Not Resolved]
  - Malaise [Unknown]
  - Tremor [Unknown]
  - Hypertension [Unknown]
  - Muscle spasticity [Unknown]

NARRATIVE: CASE EVENT DATE: 201905
